FAERS Safety Report 12758374 (Version 1)
Quarter: 2016Q3

REPORT INFORMATION
  Report Type: Spontaneous
  Country: None (occurrence: US)
  Receive Date: 20160916
  Receipt Date: 20160916
  Transmission Date: 20161109
  Serious: No
  Sender: FDA-Public Use
  Company Number: None

PATIENT

DRUGS (11)
  1. ZOFRAN [Concomitant]
     Active Substance: ONDANSETRON HYDROCHLORIDE
  2. OXYCODONE [Concomitant]
     Active Substance: OXYCODONE
  3. TRIAMCINOLONE ACETONIDE. [Concomitant]
     Active Substance: TRIAMCINOLONE ACETONIDE
  4. SENNOSIDES. [Concomitant]
     Active Substance: SENNOSIDES
  5. URSODIOL. [Concomitant]
     Active Substance: URSODIOL
  6. HEPARIN PORCINE [Concomitant]
  7. TEMOZOLOMIDE 100MG [Suspect]
     Active Substance: TEMOZOLOMIDE
     Indication: PANCREATIC NEUROENDOCRINE TUMOUR METASTATIC
     Dosage: TEMOZOLOMIDE 200MG/M^2 DAY 10-14 ORAL
     Route: 048
     Dates: start: 20150212, end: 20150803
  8. MULTIVITAMIN [Concomitant]
     Active Substance: VITAMINS
  9. PROCHLORPERAZINE. [Concomitant]
     Active Substance: PROCHLORPERAZINE
  10. LISINOPRIL. [Concomitant]
     Active Substance: LISINOPRIL
  11. LORATADINE-PSEUDOEPHEDRINE [Concomitant]

REACTIONS (6)
  - Condition aggravated [None]
  - Ecchymosis [None]
  - Blood disorder [None]
  - Lymphatic disorder [None]
  - Thrombocytopenia [None]
  - Congenital thrombocyte disorder [None]
